FAERS Safety Report 5747825-8 (Version None)
Quarter: 2008Q2

REPORT INFORMATION
  Report Type: 
  Country: None (occurrence: None)
  Receive Date: 20080523
  Receipt Date: 20080516
  Transmission Date: 20081010
  Serious: Yes (Death)
  Sender: FDA-Public Use
  Company Number: B0521492A

PATIENT
  Age: 74 Year
  Sex: Male

DRUGS (5)
  1. AVANDIA [Suspect]
     Route: 048
     Dates: start: 20060101, end: 20070401
  2. SIMVASTATIN [Concomitant]
  3. AMARYL [Concomitant]
  4. OMNIC [Concomitant]
  5. METFORMIN HCL [Concomitant]

REACTIONS (1)
  - SUDDEN DEATH [None]
